FAERS Safety Report 7672656-1 (Version None)
Quarter: 2011Q3

REPORT INFORMATION
  Report Type: 
  Country: None (occurrence: None)
  Receive Date: 20110809
  Receipt Date: 20110804
  Transmission Date: 20111222
  Serious: Yes (Other)
  Sender: FDA-Public Use
  Company Number: US-BAYER-2011-053488

PATIENT
  Age: 63 Year
  Sex: Male

DRUGS (1)
  1. EOVIST [Suspect]
     Indication: NUCLEAR MAGNETIC RESONANCE IMAGING
     Dosage: 10 ML, ONCE
     Route: 042
     Dates: start: 20110621, end: 20110621

REACTIONS (6)
  - MICTURITION URGENCY [None]
  - PRURITUS GENERALISED [None]
  - RASH [None]
  - LACRIMATION INCREASED [None]
  - ORAL PRURITUS [None]
  - NASAL CONGESTION [None]
